FAERS Safety Report 7987342-8 (Version None)
Quarter: 2011Q4

REPORT INFORMATION
  Report Type: 
  Country: None (occurrence: None)
  Receive Date: 20111216
  Receipt Date: 20111020
  Transmission Date: 20120403
  Serious: No
  Sender: FDA-Public Use
  Company Number: US-BRISTOL-MYERS SQUIBB COMPANY-16181141

PATIENT
  Age: 42 Year
  Sex: Female

DRUGS (3)
  1. LUNESTA [Concomitant]
  2. PROZAC [Concomitant]
  3. ABILIFY [Suspect]
     Dosage: DOSE INCREASED TO 10MG.
     Dates: start: 20101201

REACTIONS (1)
  - WEIGHT INCREASED [None]
